FAERS Safety Report 22631771 (Version 1)
Quarter: 2023Q2

REPORT INFORMATION
  Report Type: Spontaneous
  Country: DE (occurrence: DE)
  Receive Date: 20230623
  Receipt Date: 20230623
  Transmission Date: 20230722
  Serious: Yes (Hospitalization, Other)
  Sender: FDA-Public Use
  Company Number: DE-AMGEN-DEUNI2023096808

PATIENT
  Age: 83 Year
  Sex: Male

DRUGS (8)
  1. DEXAMETHASONE [Suspect]
     Active Substance: DEXAMETHASONE
     Indication: Plasma cell myeloma
     Dosage: 20 MG
     Route: 065
     Dates: start: 20230306, end: 20230322
  2. CARFILZOMIB [Suspect]
     Active Substance: CARFILZOMIB
     Indication: Plasma cell myeloma
     Dosage: 39 MG
     Route: 065
     Dates: start: 20230306
  3. CARFILZOMIB [Suspect]
     Active Substance: CARFILZOMIB
     Dosage: 110 MG
     Route: 065
     Dates: end: 20230322
  4. CLEMASTINE FUMARATE [Concomitant]
     Active Substance: CLEMASTINE FUMARATE
     Indication: Product used for unknown indication
     Dosage: 5 ML, CYCLIC
     Route: 042
     Dates: start: 20191118
  5. OMEPRAZOLE [Concomitant]
     Active Substance: OMEPRAZOLE
     Indication: Product used for unknown indication
     Dosage: 20 MG, CYCLIC
     Route: 048
     Dates: start: 20191119
  6. ACETAMINOPHEN [Concomitant]
     Active Substance: ACETAMINOPHEN
     Indication: Product used for unknown indication
     Dosage: 1000 MG, CYCLIC
     Route: 048
     Dates: start: 20191118, end: 20230131
  7. PREDNISOLONE SODIUM SUCCINATE [Concomitant]
     Active Substance: PREDNISOLONE SODIUM SUCCINATE
     Indication: Product used for unknown indication
     Dosage: 100 MG, CYCLIC
     Route: 042
     Dates: start: 20191118
  8. MCP [Concomitant]
     Active Substance: METOCLOPRAMIDE HYDROCHLORIDE
     Indication: Product used for unknown indication
     Dosage: UNK UNK, PRN
     Route: 048
     Dates: start: 20191119

REACTIONS (2)
  - Prerenal failure [Recovering/Resolving]
  - Thrombocytopenia [Recovered/Resolved]

NARRATIVE: CASE EVENT DATE: 20230301
